FAERS Safety Report 8977896 (Version 2)
Quarter: 2013Q3

REPORT INFORMATION
  Report Type: Report from Study
  Country: JP (occurrence: JP)
  Receive Date: 20121219
  Receipt Date: 20130911
  Transmission Date: 20140515
  Serious: No
  Sender: FDA-Public Use
  Company Number: JP-VERTEX PHARMACEUTICALS INC.-2012-026286

PATIENT
  Age: 47 Year
  Sex: Male

DRUGS (14)
  1. VX-950 (TELAPREVIR) [Suspect]
     Indication: CHRONIC HEPATITIS C
     Dosage: 2250 MG, QD
     Route: 048
     Dates: start: 20120425, end: 20120502
  2. VX-950 (TELAPREVIR) [Suspect]
     Dosage: 1500 MG, QD
     Route: 048
     Dates: start: 20120504, end: 20120725
  3. RIBAVIRIN [Suspect]
     Indication: CHRONIC HEPATITIS C
     Dosage: 800 MG, QD
     Route: 048
     Dates: start: 20120425, end: 20120627
  4. RIBAVIRIN [Suspect]
     Dosage: 600 MG, QD
     Route: 048
     Dates: start: 20120628
  5. PEGINTERFERON ALFA-2B [Suspect]
     Indication: CHRONIC HEPATITIS C
     Dosage: 1.5 ?G/KG, QW
     Route: 058
     Dates: start: 20120425
  6. MOHRUS L [Suspect]
     Indication: ADVERSE EVENT
     Dosage: UNK
     Route: 061
     Dates: start: 20120430, end: 20120430
  7. AMLODIPINE [Concomitant]
     Dosage: 5 MG, QD
     Route: 048
  8. PHENLASE [Concomitant]
     Dosage: 3 DF, QD
     Route: 048
     Dates: end: 20120510
  9. SELBEX [Concomitant]
     Dosage: 150 MG, QD
     Route: 048
     Dates: end: 20120510
  10. LANSOPRAZOLE [Concomitant]
     Dosage: 15 MG, QD
     Route: 048
     Dates: end: 20120510
  11. FEBURIC [Concomitant]
     Dosage: 10 MG, QD
     Route: 048
     Dates: start: 20120507, end: 20120613
  12. FEBURIC [Concomitant]
     Dosage: 20 MG, QD
     Route: 048
     Dates: start: 20120614
  13. ALESION [Concomitant]
     Dosage: 20 MG, QD
     Route: 048
     Dates: end: 20120719
  14. GASMOTIN [Concomitant]
     Dosage: 15 MG, QD
     Route: 048

REACTIONS (1)
  - Renal impairment [Recovered/Resolved]
